FAERS Safety Report 5895232-X (Version None)
Quarter: 2008Q3

REPORT INFORMATION
  Report Type: 
  Country: None (occurrence: None)
  Receive Date: 20080924
  Receipt Date: 20080917
  Transmission Date: 20090109
  Serious: Yes (Death, Hospitalization)
  Sender: FDA-Public Use
  Company Number: A0748901A

PATIENT
  Age: 52 Year
  Sex: Male
  Weight: 45 kg

DRUGS (2)
  1. SERETIDE [Suspect]
     Indication: DRUG USE FOR UNKNOWN INDICATION
  2. ITRACONAZOLE [Concomitant]
     Dosage: 4TAB PER DAY
     Dates: start: 20070915, end: 20080206

REACTIONS (1)
  - PNEUMONIA [None]
